FAERS Safety Report 19088110 (Version 3)
Quarter: 2021Q4

REPORT INFORMATION
  Report Type: Report from Study
  Country: IL (occurrence: IL)
  Receive Date: 20210402
  Receipt Date: 20211213
  Transmission Date: 20220303
  Serious: Yes (Hospitalization, Other)
  Sender: FDA-Public Use
  Company Number: IL-ABBVIE-20K-082-3354640-00

PATIENT
  Age: 56 Year
  Sex: Female

DRUGS (3)
  1. CARBIDOPA\LEVODOPA [Suspect]
     Active Substance: CARBIDOPA\LEVODOPA
     Indication: Parkinson^s disease
     Route: 050
     Dates: start: 20180512, end: 2018
  2. CARBIDOPA\LEVODOPA [Suspect]
     Active Substance: CARBIDOPA\LEVODOPA
     Dosage: CURRENT: MORNING DOSE 10.5ML, CONTINUOUS RATE 2.9ML, EXTRA DOSE 1.4ML
     Route: 050
     Dates: start: 20181205
  3. CARBIDOPA\LEVODOPA [Suspect]
     Active Substance: CARBIDOPA\LEVODOPA
     Dosage: CURRENT- MORNING DOSAGE(ML) 10.5 , CONTINUOUS DOSAGE (ML/H)?2.9 , EXTRA DOSAGE (ML) 2.0
     Route: 050

REACTIONS (14)
  - Medical device site swelling [Not Recovered/Not Resolved]
  - Medical device site warmth [Not Recovered/Not Resolved]
  - Stoma site cellulitis [Recovering/Resolving]
  - Stoma site abscess [Recovering/Resolving]
  - Stoma site erythema [Not Recovered/Not Resolved]
  - Movement disorder [Recovering/Resolving]
  - Stoma site infection [Unknown]
  - Abdominal pain [Recovering/Resolving]
  - Somnolence [Unknown]
  - Stoma site pain [Unknown]
  - Dystonia [Not Recovered/Not Resolved]
  - Sensory loss [Unknown]
  - Dyskinesia [Unknown]
  - Weight increased [Unknown]

NARRATIVE: CASE EVENT DATE: 20200201
